FAERS Safety Report 8007214-2 (Version None)
Quarter: 2011Q4

REPORT INFORMATION
  Report Type: 
  Country: None (occurrence: None)
  Receive Date: 20111227
  Receipt Date: 20111221
  Transmission Date: 20120403
  Serious: Yes (Other)
  Sender: FDA-Public Use
  Company Number: IT-PFIZER INC-2011280150

PATIENT
  Age: 64 Year
  Sex: Male

DRUGS (7)
  1. VARENICLINE TARTRATE [Suspect]
     Dosage: 0.5 MG, 2X/DAY
     Route: 048
     Dates: start: 20111015, end: 20111018
  2. CARDURA [Concomitant]
     Indication: HYPERTENSION
     Dosage: 2 MG, DAILY
     Route: 048
  3. VARENICLINE TARTRATE [Suspect]
     Indication: SMOKING CESSATION THERAPY
     Dosage: 0.5 MG, 1X/DAY
     Route: 048
     Dates: start: 20111012, end: 20111014
  4. DIBASE [Concomitant]
     Indication: OSTEOPOROSIS
     Dosage: 25 GTT, WEEKLY
     Route: 048
  5. VARENICLINE TARTRATE [Suspect]
     Dosage: 1 MG, 2X/DAY
     Route: 048
     Dates: start: 20111019, end: 20111025
  6. ALENDRONATE SODIUM [Concomitant]
     Indication: OSTEOPOROSIS
     Dosage: 70 MG, WEEKLY
     Route: 048
  7. SINERTEC [Concomitant]
     Indication: HYPERTENSION
     Dosage: 1 DF, DAILY
     Route: 048

REACTIONS (2)
  - ATAXIA [None]
  - PARAESTHESIA [None]
